FAERS Safety Report 5675679-7 (Version None)
Quarter: 2008Q1

REPORT INFORMATION
  Report Type: 
  Country: None (occurrence: None)
  Receive Date: 20080321
  Receipt Date: 20080318
  Transmission Date: 20080703
  Serious: Yes (Other)
  Sender: FDA-Public Use
  Company Number: PHNU2008DE01335

PATIENT
  Sex: Female

DRUGS (1)
  1. TEGRETAL RETARD [Suspect]
     Dosage: FOR 20 YEARS
     Route: 048

REACTIONS (3)
  - DISORIENTATION [None]
  - TREMOR [None]
  - WITHDRAWAL SYNDROME [None]
